FAERS Safety Report 17428856 (Version 2)
Quarter: 2020Q2

REPORT INFORMATION
  Report Type: Spontaneous
  Country: US (occurrence: US)
  Receive Date: 20200217
  Receipt Date: 20200409
  Transmission Date: 20200713
  Serious: Yes (Hospitalization, Other)
  Sender: FDA-Public Use
  Company Number: US-PFM-2020-01731

PATIENT
  Age: 8 Month
  Sex: Female
  Weight: 8.84 kg

DRUGS (2)
  1. HEMANGEOL [Suspect]
     Active Substance: PROPRANOLOL HYDROCHLORIDE
     Indication: INFANTILE HAEMANGIOMA
     Dosage: 3.6 ML, BID (2/DAY)
     Route: 048
  2. HEMANGEOL [Suspect]
     Active Substance: PROPRANOLOL HYDROCHLORIDE
     Dosage: 3.8 ML, BID (2/DAY)
     Route: 048

REACTIONS (3)
  - Bronchial hyperreactivity [Unknown]
  - Pneumonia [Unknown]
  - Upper respiratory tract infection [Unknown]

NARRATIVE: CASE EVENT DATE: 202001
